FAERS Safety Report 6415517-8 (Version None)
Quarter: 2009Q4

REPORT INFORMATION
  Report Type: 
  Country: None (occurrence: None)
  Receive Date: 20091027
  Receipt Date: 20091021
  Transmission Date: 20100525
  Serious: Yes (Hospitalization)
  Sender: FDA-Public Use
  Company Number: FR-WYE-G04677209

PATIENT
  Sex: Male

DRUGS (10)
  1. ADVIL [Suspect]
     Indication: RASH ERYTHEMATOUS
     Dosage: ONE SINGLE TABLET
     Route: 048
     Dates: start: 20090808, end: 20090808
  2. STREFEN [Suspect]
     Indication: RASH ERYTHEMATOUS
     Dosage: 5 DOSE-FORM TOTAL DAILY
     Route: 048
     Dates: start: 20090810, end: 20090810
  3. MUXOL /FRA/ [Concomitant]
     Dosage: UNKNOWN
     Route: 048
     Dates: start: 20090810, end: 20090810
  4. VITAMIN B6 [Concomitant]
     Dosage: 2 DOSE-FORMS
     Route: 048
     Dates: start: 20090807, end: 20090807
  5. HUMEX [Concomitant]
     Dosage: UNKNOWN
     Route: 048
     Dates: start: 20090810, end: 20090810
  6. DI-ANTALVIC [Concomitant]
     Dosage: ONE TABLET
     Route: 048
     Dates: start: 20090807, end: 20090807
  7. ACETAMINOPHEN [Concomitant]
     Dosage: ONE TABLET
     Route: 048
     Dates: start: 20090807, end: 20090807
  8. MAGNESIUM [Concomitant]
     Dosage: 2 DOSE-FORM
     Route: 048
     Dates: start: 20090807, end: 20090807
  9. SPEDIFEN [Suspect]
     Indication: VIRAL INFECTION
     Route: 048
     Dates: start: 20090810, end: 20090810
  10. DRILL [Concomitant]
     Dosage: UNKNOWN
     Route: 048
     Dates: start: 20090810, end: 20090810

REACTIONS (4)
  - CHEILITIS [None]
  - CONJUNCTIVITIS [None]
  - MOUTH ULCERATION [None]
  - TOXIC SKIN ERUPTION [None]
